FAERS Safety Report 17370312 (Version 1)
Quarter: 2020Q1

REPORT INFORMATION
  Report Type: Spontaneous
  Country: US (occurrence: US)
  Receive Date: 20200205
  Receipt Date: 20200205
  Transmission Date: 20200409
  Serious: Yes (Hospitalization, Other)
  Sender: FDA-Public Use
  Company Number: US-MALLINCKRODT-T202000403

PATIENT
  Sex: Female

DRUGS (2)
  1. H.P. ACTHAR [Suspect]
     Active Substance: CORTICOTROPIN
     Indication: RHEUMATOID ARTHRITIS
     Dosage: 1 ML, TWICE A WEEK
     Route: 058
     Dates: start: 20190820
  2. H.P. ACTHAR [Suspect]
     Active Substance: CORTICOTROPIN
     Indication: MYOPATHY

REACTIONS (5)
  - Weight increased [Unknown]
  - Blood glucose increased [Unknown]
  - Knee operation [Unknown]
  - Blood pressure increased [Unknown]
  - Arthropathy [Unknown]
